FAERS Safety Report 7108415-8 (Version None)
Quarter: 2010Q4

REPORT INFORMATION
  Report Type: 
  Country: None (occurrence: None)
  Receive Date: 20101117
  Receipt Date: 20101115
  Transmission Date: 20110411
  Serious: Yes (Other)
  Sender: FDA-Public Use
  Company Number: A0892569A

PATIENT
  Age: 62 Year
  Sex: Female

DRUGS (9)
  1. LOVAZA [Suspect]
     Dosage: 4CAPL VARIABLE DOSE
     Route: 048
     Dates: start: 20081101
  2. ALTACE [Concomitant]
  3. TENORMIN [Concomitant]
  4. SYNTHROID [Concomitant]
  5. PROZAC [Concomitant]
  6. ASPIRIN [Concomitant]
  7. VITAMIN B [Concomitant]
  8. MULTI-VITAMIN [Concomitant]
  9. ASCORBIC ACID [Concomitant]

REACTIONS (4)
  - CHOKING [None]
  - GASTRIC DISORDER [None]
  - PAIN [None]
  - TENDONITIS [None]
